FAERS Safety Report 9530454 (Version 1)
Quarter: 2013Q3

REPORT INFORMATION
  Report Type: Spontaneous
  Country: DE (occurrence: DE)
  Receive Date: 20130918
  Receipt Date: 20130918
  Transmission Date: 20140515
  Serious: Yes (Hospitalization)
  Sender: FDA-Public Use
  Company Number: DE-BIOGENIDEC-2013BI089041

PATIENT
  Age: 54 Year
  Sex: Male
  Weight: 112 kg

DRUGS (2)
  1. AVONEX [Suspect]
     Indication: MULTIPLE SCLEROSIS
     Route: 030
     Dates: start: 20110728
  2. ARCOXIA [Concomitant]
     Indication: PROPHYLAXIS
     Route: 048
     Dates: start: 20110728

REACTIONS (1)
  - Intervertebral disc protrusion [Not Recovered/Not Resolved]
